FAERS Safety Report 19605496 (Version 1)
Quarter: 2021Q3

REPORT INFORMATION
  Report Type: Spontaneous
  Country: AT (occurrence: AT)
  Receive Date: 20210723
  Receipt Date: 20210723
  Transmission Date: 20211014
  Serious: Yes (Other)
  Sender: FDA-Public Use
  Company Number: AT-ANIPHARMA-2021-AT-000020

PATIENT
  Sex: Female

DRUGS (4)
  1. FULVESTRANT. [Suspect]
     Active Substance: FULVESTRANT
     Dosage: 500 MG UNK
     Route: 030
     Dates: start: 2019, end: 20210311
  2. ANASTROZOLE. [Suspect]
     Active Substance: ANASTROZOLE
     Indication: BREAST CANCER
     Route: 048
  3. XGEVA [Concomitant]
     Active Substance: DENOSUMAB
     Dosage: UNKNOWN DOSE AND FREQUENCY
     Route: 065
     Dates: start: 20190830, end: 20200114
  4. ABEMACICLIB [Concomitant]
     Active Substance: ABEMACICLIB
     Dosage: 150 MG BID
     Route: 065
     Dates: start: 20190830, end: 20210311

REACTIONS (11)
  - Haemoglobin decreased [Unknown]
  - Metastases to spine [Unknown]
  - Osteonecrosis [Unknown]
  - Malignant neoplasm progression [Unknown]
  - Pathological fracture [Unknown]
  - Anaemia [Unknown]
  - Metastases to lung [Unknown]
  - Metastases to bone [Unknown]
  - Pneumonia [Unknown]
  - Metastases to liver [Unknown]
  - Breast cancer [Unknown]

NARRATIVE: CASE EVENT DATE: 201907
